FAERS Safety Report 9175068 (Version 1)
Quarter: 2013Q1

REPORT INFORMATION
  Report Type: Report from Study
  Country: DE (occurrence: DE)
  Receive Date: 20130320
  Receipt Date: 20130320
  Transmission Date: 20140127
  Serious: Yes (Hospitalization)
  Sender: FDA-Public Use
  Company Number: DE-009507513-1303DEU008721

PATIENT
  Age: 50 Year
  Sex: Female
  Weight: 78 kg

DRUGS (6)
  1. BOCEPREVIR [Suspect]
     Indication: CHRONIC HEPATITIS C
     Dosage: 4 DF, Q8H
     Route: 048
     Dates: start: 20111223, end: 20120712
  2. RIBAVIRIN [Suspect]
     Indication: CHRONIC HEPATITIS C
     Dosage: 600 MG DAILY
     Route: 048
     Dates: start: 20111125, end: 20120712
  3. PEGASYS [Suspect]
     Indication: CHRONIC HEPATITIS C
     Dosage: 180 MICROGRAM, QW
     Route: 058
     Dates: start: 20111125, end: 20120706
  4. PANTOZOL [Concomitant]
     Indication: PEPTIC ULCER
     Dosage: 40 MG, UNK
     Route: 048
  5. AZATHIOPRINE [Concomitant]
     Indication: RHEUMATOID ARTHRITIS
     Dosage: 1 DF DAILY
     Route: 048
     Dates: start: 20120712
  6. PREDNISOLONE [Concomitant]
     Indication: RHEUMATOID ARTHRITIS
     Dosage: 5 MG DAILY
     Route: 048
     Dates: start: 20120712

REACTIONS (4)
  - Transfusion reaction [Recovered/Resolved]
  - Anaemia [Recovered/Resolved]
  - Cutaneous vasculitis [Not Recovered/Not Resolved]
  - Skin infection [Not Recovered/Not Resolved]
